FAERS Safety Report 22016591 (Version 3)
Quarter: 2023Q1

REPORT INFORMATION
  Report Type: Spontaneous
  Country: US (occurrence: US)
  Receive Date: 20230221
  Receipt Date: 20230324
  Transmission Date: 20230418
  Serious: Yes (Other)
  Sender: FDA-Public Use
  Company Number: US-BAYER-2023P009615

PATIENT
  Sex: Female

DRUGS (5)
  1. ADEMPAS [Suspect]
     Active Substance: RIOCIGUAT
     Indication: Product used for unknown indication
     Dosage: UNK
     Route: 065
  2. AMBRISENTAN [Suspect]
     Active Substance: AMBRISENTAN
     Indication: Pulmonary arterial hypertension
     Dosage: 5 MG, QD
     Route: 065
     Dates: start: 20210618
  3. AMBRISENTAN [Suspect]
     Active Substance: AMBRISENTAN
     Indication: Pulmonary arterial hypertension
  4. AMBRISENTAN [Suspect]
     Active Substance: AMBRISENTAN
     Indication: Product used for unknown indication
  5. ELIQUIS [Concomitant]
     Active Substance: APIXABAN
     Dosage: UNK

REACTIONS (11)
  - Constipation [Unknown]
  - Somnolence [None]
  - Rhinorrhoea [Unknown]
  - Gingival pain [Unknown]
  - Toothache [Unknown]
  - Weight decreased [Unknown]
  - Decreased appetite [Unknown]
  - Hypophagia [Unknown]
  - Fatigue [Unknown]
  - Asthenia [Unknown]
  - Flatulence [Unknown]
